FAERS Safety Report 5269467-3 (Version None)
Quarter: 2007Q1

REPORT INFORMATION
  Report Type: 
  Country: None (occurrence: None)
  Receive Date: 20061213
  Receipt Date: 20031013
  Transmission Date: 20070707
  Serious: Yes (Other)
  Sender: FDA-Public Use
  Company Number: 2003UW13222

PATIENT
  Sex: Male

DRUGS (1)
  1. IRESSA [Suspect]
     Dosage: 1/2 TAB ALTERNATING WITH 1 TAB DAILY

REACTIONS (3)
  - ASTHENIA [None]
  - DRY SKIN [None]
  - RASH [None]
